FAERS Safety Report 6053206-2 (Version None)
Quarter: 2009Q1

REPORT INFORMATION
  Report Type: 
  Country: None (occurrence: None)
  Receive Date: 20090127
  Receipt Date: 20090121
  Transmission Date: 20090719
  Serious: Yes (Other)
  Sender: FDA-Public Use
  Company Number: B0556050A

PATIENT
  Sex: Male

DRUGS (1)
  1. NIQUITIN CQ CLEAR 14MG [Suspect]
     Indication: DRUG USE FOR UNKNOWN INDICATION
     Route: 062

REACTIONS (5)
  - AGGRESSION [None]
  - CONVULSION [None]
  - DYSKINESIA [None]
  - MUSCLE TWITCHING [None]
  - TREMOR [None]
